FAERS Safety Report 21418732 (Version 9)
Quarter: 2025Q2

REPORT INFORMATION
  Report Type: Spontaneous
  Country: PK (occurrence: PK)
  Receive Date: 20221006
  Receipt Date: 20250501
  Transmission Date: 20250717
  Serious: Yes (Hospitalization, Other)
  Sender: PFIZER
  Company Number: PK-PFIZER INC-2021902971

PATIENT
  Age: 63 Year
  Sex: Female

DRUGS (11)
  1. IBRANCE [Suspect]
     Active Substance: PALBOCICLIB
     Indication: Breast cancer female
     Dates: start: 202105
  2. IBRANCE [Suspect]
     Active Substance: PALBOCICLIB
     Dosage: 100 MG, DAILY
     Route: 048
     Dates: start: 20210525
  3. IBRANCE [Suspect]
     Active Substance: PALBOCICLIB
     Route: 048
     Dates: start: 20211012, end: 20220723
  4. IBRANCE [Suspect]
     Active Substance: PALBOCICLIB
     Route: 048
  5. IBRANCE [Suspect]
     Active Substance: PALBOCICLIB
     Route: 048
     Dates: start: 20221112
  6. IBRANCE [Suspect]
     Active Substance: PALBOCICLIB
     Route: 048
     Dates: start: 20221112
  7. AROMASIN [Concomitant]
     Active Substance: EXEMESTANE
     Dosage: 25 MG, 1X/DAY
  8. ZOMETA [Concomitant]
     Active Substance: ZOLEDRONIC ACID
  9. FASLODEX [Concomitant]
     Active Substance: FULVESTRANT
  10. ARIMIDEX [Concomitant]
     Active Substance: ANASTROZOLE
  11. ABEMACICLIB [Concomitant]
     Active Substance: ABEMACICLIB

REACTIONS (10)
  - Cholelithiasis [Recovering/Resolving]
  - Breast cancer female [Unknown]
  - Malignant neoplasm progression [Unknown]
  - Metastasis [Unknown]
  - Cyst [Recovered/Resolved]
  - Lacrimation increased [Recovered/Resolved]
  - White blood cell count decreased [Unknown]
  - Blood potassium decreased [Unknown]
  - Product prescribing error [Unknown]
  - Off label use [Unknown]

NARRATIVE: CASE EVENT DATE: 20220101
